FAERS Safety Report 8298498-4 (Version None)
Quarter: 2012Q2

REPORT INFORMATION
  Report Type: 
  Country: None (occurrence: None)
  Receive Date: 20120419
  Receipt Date: 20111205
  Transmission Date: 20120825
  Serious: No
  Sender: FDA-Public Use
  Company Number: US-ABBOTT-11P-163-0882739-00

PATIENT
  Sex: Male
  Weight: 57.204 kg

DRUGS (3)
  1. UNKNOWN OTHER TOPICAL MEDICATIONS [Concomitant]
     Indication: PRODUCT USED FOR UNKNOWN INDICATION
     Route: 061
  2. LUPRON DEPOT-PED [Suspect]
     Indication: PRECOCIOUS PUBERTY
     Route: 050
  3. MINOCYCLINE HCL [Concomitant]
     Indication: SKIN DISORDER
     Route: 061

REACTIONS (4)
  - AVULSION FRACTURE [None]
  - ARTHRALGIA [None]
  - PAIN [None]
  - PELVIC FRACTURE [None]
